FAERS Safety Report 4386135-0 (Version None)
Quarter: 2004Q2

REPORT INFORMATION
  Report Type: 
  Country: None (occurrence: None)
  Receive Date: 20040625
  Receipt Date: 20040625
  Transmission Date: 20050107
  Serious: No
  Sender: FDA-Public Use
  Company Number: None

PATIENT
  Age: 57 Year
  Sex: Female

DRUGS (1)
  1. MIDAZOLAM HCL [Suspect]
     Indication: SEDATION
     Dosage: 2 MG IV
     Route: 042
     Dates: start: 20040218

REACTIONS (4)
  - HYPERKINESIA [None]
  - HYPOXIA [None]
  - PARADOXICAL DRUG REACTION [None]
  - PROCEDURAL COMPLICATION [None]
